FAERS Safety Report 20111837 (Version 1)
Quarter: 2021Q4

REPORT INFORMATION
  Report Type: Spontaneous
  Country: US (occurrence: US)
  Receive Date: 20211125
  Receipt Date: 20211125
  Transmission Date: 20220303
  Serious: No
  Sender: FDA-Public Use
  Company Number: US-ENDO PHARMACEUTICALS INC-2021-010999

PATIENT
  Sex: Male

DRUGS (2)
  1. VANTAS [Suspect]
     Active Substance: HISTRELIN ACETATE
     Indication: Prostate cancer
     Dosage: UNK UNKNOWN, UNKNOWN
     Route: 065
     Dates: start: 202003
  2. VANTAS [Suspect]
     Active Substance: HISTRELIN ACETATE
     Indication: Prostate cancer
     Dosage: UNK UNKNOWN, UNKNOWN
     Route: 065
     Dates: start: 202003

REACTIONS (2)
  - Incorrect product administration duration [Not Recovered/Not Resolved]
  - Procedural complication [Not Recovered/Not Resolved]

NARRATIVE: CASE EVENT DATE: 20210101
